FAERS Safety Report 5004606-0 (Version None)
Quarter: 2006Q2

REPORT INFORMATION
  Report Type: 
  Country: None (occurrence: None)
  Receive Date: 20060516
  Receipt Date: 20060516
  Transmission Date: 20061013
  Serious: No
  Sender: FDA-Public Use
  Company Number: None

PATIENT
  Age: 53 Year
  Sex: Male
  Weight: 99.7913 kg

DRUGS (1)
  1. ADVAIR DISKUS 250/50 [Suspect]
     Indication: CHRONIC OBSTRUCTIVE PULMONARY DISEASE
     Dosage: I 2 PER DAY INHAL
     Route: 055
     Dates: start: 20050801, end: 20050930

REACTIONS (3)
  - DYSPHONIA [None]
  - MITRAL VALVE PROLAPSE [None]
  - PSYCHIATRIC SYMPTOM [None]
